FAERS Safety Report 6645607-6 (Version None)
Quarter: 2010Q1

REPORT INFORMATION
  Report Type: 
  Country: None (occurrence: None)
  Receive Date: 20100319
  Receipt Date: 20100319
  Transmission Date: 20100710
  Serious: Yes (Hospitalization)
  Sender: FDA-Public Use
  Company Number: None

PATIENT
  Age: 47 Year
  Sex: Male
  Weight: 92.9874 kg

DRUGS (7)
  1. RISPERDAL CONSTA [Suspect]
     Indication: SCHIZOPHRENIA
     Dosage: 37.5 MG BI-WEEKLY IM
     Route: 030
     Dates: start: 20070101, end: 20100312
  2. GEODON [Concomitant]
  3. KLONOPIN [Concomitant]
  4. LEXAPRO [Concomitant]
  5. METFORMIN HCL [Concomitant]
  6. PRAVASTATIN [Concomitant]
  7. CAMPRAL [Concomitant]

REACTIONS (6)
  - AMNESIA [None]
  - DEAFNESS UNILATERAL [None]
  - DIZZINESS [None]
  - LOSS OF CONSCIOUSNESS [None]
  - MENTAL STATUS CHANGES [None]
  - NAUSEA [None]
